FAERS Safety Report 17392637 (Version 3)
Quarter: 2020Q2

REPORT INFORMATION
  Report Type: Spontaneous
  Country: US (occurrence: US)
  Receive Date: 20200207
  Receipt Date: 20200403
  Transmission Date: 20200713
  Serious: No
  Sender: FDA-Public Use
  Company Number: US-AMGEN-USASP2020019366

PATIENT
  Age: 68 Year
  Sex: Female
  Weight: 77.73 kg

DRUGS (1)
  1. ENBREL [Suspect]
     Active Substance: ETANERCEPT
     Indication: PSORIASIS
     Dosage: 50 MILLIGRAM, 2 TIMES/WK
     Route: 065
     Dates: start: 20191112, end: 202002

REACTIONS (3)
  - Therapeutic product effect decreased [Unknown]
  - Device use error [Unknown]
  - Device malfunction [Unknown]
